FAERS Safety Report 7744616-3 (Version None)
Quarter: 2011Q3

REPORT INFORMATION
  Report Type: 
  Country: None (occurrence: None)
  Receive Date: 20110912
  Receipt Date: 20110901
  Transmission Date: 20111222
  Serious: Yes (Hospitalization, Other)
  Sender: FDA-Public Use
  Company Number: US-BAYER-2011-020311

PATIENT
  Age: 30 Year
  Sex: Female
  Weight: 82 kg

DRUGS (2)
  1. OXYCODONE HCL AND ACETAMINOPHEN [Concomitant]
     Dosage: UNK
     Dates: start: 20090311
  2. YAZ [Suspect]
     Indication: CONTRACEPTION
     Dosage: UNK UNK, UNK
     Route: 048
     Dates: start: 20070827, end: 20090409

REACTIONS (9)
  - ABDOMINAL PAIN [None]
  - GALLBLADDER DISORDER [None]
  - BILIARY DYSKINESIA [None]
  - ANXIETY [None]
  - SCAR [None]
  - POST CHOLECYSTECTOMY SYNDROME [None]
  - CHOLECYSTITIS CHRONIC [None]
  - GALLBLADDER PAIN [None]
  - INJURY [None]
